FAERS Safety Report 7082633-X (Version None)
Quarter: 2010Q4

REPORT INFORMATION
  Report Type: 
  Country: None (occurrence: None)
  Receive Date: 20101104
  Receipt Date: 20101025
  Transmission Date: 20110411
  Serious: Yes (Hospitalization, Other)
  Sender: FDA-Public Use
  Company Number: US-JNJFOC-20101007688

PATIENT
  Sex: Female
  Weight: 64.41 kg

DRUGS (5)
  1. DURAGESIC-100 [Suspect]
     Indication: PAIN
     Route: 062
  2. DURAGESIC MATRIX [Suspect]
     Indication: PAIN
     Route: 062
  3. DURAGESIC-100 [Suspect]
     Indication: PRODUCT USED FOR UNKNOWN INDICATION
     Route: 062
  4. HYDROCODONE [Concomitant]
     Indication: PAIN
     Route: 048
  5. ZANAFLEX [Concomitant]
     Indication: MUSCLE SPASMS
     Route: 048

REACTIONS (9)
  - BLADDER OPERATION [None]
  - CONGENITAL ANOMALY [None]
  - DEPRESSION [None]
  - HYSTERECTOMY [None]
  - INSOMNIA [None]
  - NEPHROLITHIASIS [None]
  - PELVIC PAIN [None]
  - PRODUCT ADHESION ISSUE [None]
  - WRONG TECHNIQUE IN DRUG USAGE PROCESS [None]
